FAERS Safety Report 9720913 (Version 1)
Quarter: 2013Q4

REPORT INFORMATION
  Report Type: Spontaneous
  Country: US (occurrence: US)
  Receive Date: 20131129
  Receipt Date: 20131129
  Transmission Date: 20140711
  Serious: Yes (Hospitalization)
  Sender: FDA-Public Use
  Company Number: US-JNJFOC-20131114840

PATIENT
  Sex: Female
  Weight: 57.61 kg

DRUGS (1)
  1. XARELTO [Suspect]
     Indication: THROMBOSIS PROPHYLAXIS
     Route: 048
     Dates: start: 20130605, end: 20130727

REACTIONS (3)
  - Haematuria [Recovered/Resolved]
  - Flank pain [Recovered/Resolved]
  - Chromaturia [Unknown]
